FAERS Safety Report 22132741 (Version 3)
Quarter: 2023Q2

REPORT INFORMATION
  Report Type: Report from Study
  Country: US (occurrence: US)
  Receive Date: 20230323
  Receipt Date: 20230526
  Transmission Date: 20230721
  Serious: Yes (Other)
  Sender: FDA-Public Use
  Company Number: US-JAZZ PHARMACEUTICALS-2023-US-006739

PATIENT
  Sex: Female

DRUGS (2)
  1. XYREM [Suspect]
     Active Substance: SODIUM OXYBATE
     Indication: Narcolepsy
     Dosage: UNK
     Dates: start: 202211
  2. XYREM [Suspect]
     Active Substance: SODIUM OXYBATE
     Dosage: 3.75G AT BED AND 3.75G BETWEEN 2.5-4 HOURS LATER

REACTIONS (4)
  - Oral surgery [Unknown]
  - Trismus [Not Recovered/Not Resolved]
  - Jaw disorder [Not Recovered/Not Resolved]
  - Feeling cold [Not Recovered/Not Resolved]
